FAERS Safety Report 7545831-4 (Version None)
Quarter: 2011Q2

REPORT INFORMATION
  Report Type: 
  Country: None (occurrence: None)
  Receive Date: 20110613
  Receipt Date: 20110613
  Transmission Date: 20111010
  Serious: Yes (Other)
  Sender: FDA-Public Use
  Company Number: None

PATIENT
  Age: 43 Year
  Sex: Female
  Weight: 86.637 kg

DRUGS (3)
  1. EFFEXOR XR [Concomitant]
  2. VENLAFAXINE [Suspect]
     Indication: DEPRESSION
     Dosage: 1 CAPSULE DAILY PO
     Route: 048
     Dates: start: 20110601, end: 20110609
  3. VENLAFAXINE [Suspect]
     Indication: ANXIETY
     Dosage: 1 CAPSULE DAILY PO
     Route: 048
     Dates: start: 20110601, end: 20110609

REACTIONS (7)
  - DEPRESSION [None]
  - ACTIVITIES OF DAILY LIVING IMPAIRED [None]
  - PAIN [None]
  - CONDITION AGGRAVATED [None]
  - FEELING ABNORMAL [None]
  - PRODUCT SUBSTITUTION ISSUE [None]
  - PANIC ATTACK [None]
